FAERS Safety Report 9624597 (Version 1)
Quarter: 2013Q4

REPORT INFORMATION
  Report Type: Spontaneous
  Country: NL (occurrence: NL)
  Receive Date: 20131015
  Receipt Date: 20131015
  Transmission Date: 20140711
  Serious: Yes (Death, Hospitalization, Other)
  Sender: FDA-Public Use
  Company Number: NL-PFIZER INC-2013295028

PATIENT
  Age: 68 Year
  Sex: Male

DRUGS (2)
  1. CISPLATIN [Suspect]
     Indication: LUNG NEOPLASM MALIGNANT
     Dosage: UNK
     Route: 042
  2. PEMETREXED [Suspect]
     Indication: LUNG NEOPLASM MALIGNANT
     Dosage: UNK
     Route: 042

REACTIONS (8)
  - Multi-organ failure [Fatal]
  - Duodenal ulcer haemorrhage [Fatal]
  - Stress ulcer [Fatal]
  - Diarrhoea [Unknown]
  - Vomiting [Unknown]
  - White blood cell count decreased [Unknown]
  - Pyrexia [Unknown]
  - Malnutrition [Unknown]
